FAERS Safety Report 8552805-3 (Version None)
Quarter: 2012Q3

REPORT INFORMATION
  Report Type: 
  Country: None (occurrence: None)
  Receive Date: 20120731
  Receipt Date: 20120727
  Transmission Date: 20120928
  Serious: No
  Sender: FDA-Public Use
  Company Number: US-PFIZER INC-2012182964

PATIENT
  Sex: Male

DRUGS (4)
  1. DEXAMETHASONE [Concomitant]
     Dosage: UNK
  2. COLACE [Concomitant]
     Dosage: UNK
  3. SUTENT [Suspect]
     Indication: RENAL CANCER
     Dosage: 50 MG, DAILY
     Route: 048
  4. LOVENOX [Concomitant]
     Dosage: UNK

REACTIONS (3)
  - OROPHARYNGEAL PAIN [None]
  - FATIGUE [None]
  - STOMATITIS [None]
